FAERS Safety Report 5846224-8 (Version None)
Quarter: 2008Q3

REPORT INFORMATION
  Report Type: 
  Country: None (occurrence: None)
  Receive Date: 20080813
  Receipt Date: 20071218
  Transmission Date: 20090109
  Serious: Yes (Hospitalization)
  Sender: FDA-Public Use
  Company Number: US158450

PATIENT
  Age: 55 Year
  Sex: Male

DRUGS (5)
  1. ENBREL [Suspect]
     Indication: RHEUMATOID ARTHRITIS
     Dosage: 25 MG, 2 IN 1 WEEKS, SC
     Route: 058
  2. ISONIAZID [Suspect]
     Indication: LATENT TUBERCULOSIS
     Dosage: 300 MG, 1 IN 1 DAYS,
  3. PYRIDOXINE(PYRIDOXINE) [Concomitant]
  4. PIROXICAM [Concomitant]
  5. DEFLAZACORT (DEFLAZACORT) [Concomitant]

REACTIONS (6)
  - DEMYELINATION [None]
  - DRUG INTERACTION [None]
  - HEADACHE [None]
  - OPTIC ATROPHY [None]
  - OPTIC NEURITIS [None]
  - SCAR [None]
